FAERS Safety Report 21480155 (Version 1)
Quarter: 2022Q4

REPORT INFORMATION
  Report Type: Report from Study
  Country: IT (occurrence: IT)
  Receive Date: 20221019
  Receipt Date: 20221019
  Transmission Date: 20230113
  Serious: Yes (Other)
  Sender: FDA-Public Use
  Company Number: None

PATIENT
  Age: 69 Year
  Sex: Male

DRUGS (9)
  1. LENALIDOMIDE [Suspect]
     Active Substance: LENALIDOMIDE
     Indication: Plasma cell myeloma
     Dosage: 15 MG, QD (POSOLOGY:1 CAPSULE DAILY FOR 21)
     Route: 048
     Dates: start: 20220510, end: 20220523
  2. ETORICOXIB [Suspect]
     Active Substance: ETORICOXIB
     Indication: Product used for unknown indication
     Dosage: UNK
     Route: 048
     Dates: start: 20220520, end: 20220523
  3. CALCIUM CARBONATE\CHOLECALCIFEROL [Concomitant]
     Active Substance: CALCIUM CARBONATE\CHOLECALCIFEROL
     Dosage: IDEOS 1 CAPSULE TWICE DAILY FOR 5DAY AFTER ZOMETA
     Route: 048
  4. ZOMETA [Concomitant]
     Active Substance: ZOLEDRONIC ACID
     Dosage: MONTHLY, ZOMETA 1 VIAL EVERY 28 DAYS.
     Route: 042
     Dates: start: 20220510
  5. ACYCLOVIR [Concomitant]
     Active Substance: ACYCLOVIR
     Dosage: 400 MG, ACYCLOVIR 400 MG ,1 CAPSULE TWICE DAILY
     Route: 048
  6. ASPIRIN [Concomitant]
     Active Substance: ASPIRIN
     Dosage: QD (CARDIOASPIRIN 1 CAPSULE 1 TIME DAILY)
     Route: 048
  7. LASIX [Concomitant]
     Active Substance: FUROSEMIDE
     Dosage: 25MG, QOD (LASIX 25 MG 1 TABLET EVERY OTHER DAY)
     Route: 048
  8. BACTRIM [Concomitant]
     Active Substance: SULFAMETHOXAZOLE\TRIMETHOPRIM
     Dosage: 1CAPSULE, MON, WED, FRI(MEDICATION DISCONTINUED
     Route: 048
  9. DEXAMETHASONE [Concomitant]
     Active Substance: DEXAMETHASONE
     Dosage: SOLDESAM TAKEN ONLY ON MAY 3
     Route: 065
     Dates: start: 20220503, end: 20220503

REACTIONS (1)
  - Drug eruption [Recovered/Resolved]

NARRATIVE: CASE EVENT DATE: 20220524
